FAERS Safety Report 10904752 (Version 1)
Quarter: 2015Q1

REPORT INFORMATION
  Report Type: Spontaneous
  Country: US (occurrence: None)
  Receive Date: 20150107
  Receipt Date: 20150107
  Transmission Date: 20150721
  Serious: No
  Sender: FDA-Public Use
  Company Number: 2014TUS013638

PATIENT
  Sex: Female
  Weight: 76.6 kg

DRUGS (2)
  1. CONTRAVE [Suspect]
     Active Substance: BUPROPION HYDROCHLORIDE\NALTREXONE HYDROCHLORIDE
     Indication: OBESITY
     Dosage: 1 TABLET, QD (QAM) ORAL
     Route: 048
     Dates: start: 20141103, end: 20141109
  2. DEXILANT [Concomitant]
     Active Substance: DEXLANSOPRAZOLE

REACTIONS (8)
  - Vomiting [None]
  - Speech disorder [None]
  - Headache [None]
  - Asthenia [None]
  - Activities of daily living impaired [None]
  - Abnormal behaviour [None]
  - Lethargy [None]
  - Diarrhoea [None]
